FAERS Safety Report 14586409 (Version 1)
Quarter: 2018Q1

REPORT INFORMATION
  Report Type: Spontaneous
  Country: US (occurrence: US)
  Receive Date: 20180301
  Receipt Date: 20180301
  Transmission Date: 20180509
  Serious: No
  Sender: FDA-Public Use
  Company Number: US-BRACCO DIAGNOSTICS, INC.-2017US04435

PATIENT

DRUGS (2)
  1. CHOLETEC [Suspect]
     Active Substance: TECHNETIUM TC-99M MEBROFENIN
     Indication: DIAGNOSTIC PROCEDURE
     Dosage: 5.16 MCI, SINGLE
     Route: 042
     Dates: start: 20170926, end: 20170926
  2. KINEVAC [Suspect]
     Active Substance: SINCALIDE
     Indication: DIAGNOSTIC PROCEDURE
     Dosage: UNK UNK, SINGLE
     Dates: start: 20170926, end: 20170926

REACTIONS (1)
  - Palmar erythema [Recovering/Resolving]

NARRATIVE: CASE EVENT DATE: 20170926
